FAERS Safety Report 5987609-9 (Version None)
Quarter: 2008Q4

REPORT INFORMATION
  Report Type: 
  Country: None (occurrence: None)
  Receive Date: 20081128
  Receipt Date: 20080922
  Transmission Date: 20090506
  Serious: Yes (Hospitalization)
  Sender: FDA-Public Use
  Company Number: US024433

PATIENT
  Age: 29 Year
  Sex: Female
  Weight: 74.3 kg

DRUGS (8)
  1. TRISENOX [Suspect]
     Dosage: 11.1 MG INTRAVENOUS DRIP
     Route: 041
     Dates: start: 20080818, end: 20080822
  2. ALLOPURINOL [Concomitant]
  3. CEFTAZIDIME [Concomitant]
  4. CLINDAMYCIN HCL [Concomitant]
  5. DEXAMETHASONE [Concomitant]
  6. OMEPRAZOLE [Concomitant]
  7. TRETINOIN [Concomitant]
  8. VANCOMYCIN [Concomitant]

REACTIONS (1)
  - RASH MACULO-PAPULAR [None]
